FAERS Safety Report 4746499-2 (Version None)
Quarter: 2005Q3

REPORT INFORMATION
  Report Type: 
  Country: None (occurrence: None)
  Receive Date: 20050815
  Receipt Date: 20050801
  Transmission Date: 20060218
  Serious: Yes (Death, Hospitalization)
  Sender: FDA-Public Use
  Company Number: 2005EN000040

PATIENT
  Age: 58 Year
  Sex: Male

DRUGS (7)
  1. ABELCET [Suspect]
     Indication: ASPERGILLOSIS
     Dosage: 1450 MG; IV
     Route: 042
     Dates: start: 20020101, end: 20020501
  2. CORTICOSTEROIDS (CORTICOSTEROIDS) [Suspect]
     Indication: ASTHMA
     Dosage: INH
     Route: 055
     Dates: end: 20020501
  3. CORTICOSTEROIDS (CORTICOSTEROIDS) [Suspect]
     Indication: PNEUMOCONIOSIS
     Dosage: INH
     Route: 055
     Dates: end: 20020501
  4. METHYLPREDISOLONE (METHYLPREDISOLONE) [Suspect]
     Indication: ASTHMA
     Dosage: IV
     Route: 042
     Dates: end: 20020501
  5. METHYLPREDISOLONE (METHYLPREDISOLONE) [Suspect]
     Indication: DYSPNOEA
     Dosage: IV
     Route: 042
     Dates: end: 20020501
  6. AMPHOTERICIN B [Suspect]
     Indication: ASPERGILLOSIS
     Dosage: 400 MG;
     Dates: end: 20020501
  7. BETA2 AGONISTS [Concomitant]

REACTIONS (10)
  - BRONCHOPULMONARY ASPERGILLOSIS [None]
  - CARDIAC MURMUR [None]
  - DRUG INEFFECTIVE [None]
  - HAEMOPTYSIS [None]
  - LUNG CONSOLIDATION [None]
  - PNEUMONIA [None]
  - PULMONARY CAVITATION [None]
  - PULMONARY MASS [None]
  - SPUTUM DISCOLOURED [None]
  - WHEEZING [None]
